FAERS Safety Report 5691170-6 (Version None)
Quarter: 2008Q2

REPORT INFORMATION
  Report Type: 
  Country: None (occurrence: None)
  Receive Date: 20080401
  Receipt Date: 20080401
  Transmission Date: 20081010
  Serious: Yes (Life-Threatening)
  Sender: FDA-Public Use
  Company Number: None

PATIENT
  Age: 56 Year
  Sex: Male
  Weight: 74.8435 kg

DRUGS (1)
  1. TRIGLIDE [Suspect]
     Indication: BLOOD TRIGLYCERIDES INCREASED
     Dosage: 1 A DAY -160-MG  EVERYDAY  PO
     Route: 048
     Dates: start: 20071205, end: 20080329

REACTIONS (2)
  - INCORRECT DOSE ADMINISTERED [None]
  - PHARMACEUTICAL PRODUCT COMPLAINT [None]
